FAERS Safety Report 4655306-8 (Version None)
Quarter: 2005Q2

REPORT INFORMATION
  Report Type: 
  Country: None (occurrence: None)
  Receive Date: 20050505
  Receipt Date: 20050420
  Transmission Date: 20051028
  Serious: Yes (Death)
  Sender: FDA-Public Use
  Company Number: MK200504-0272-1

PATIENT
  Age: 42 Year
  Sex: Male
  Weight: 150.5942 kg

DRUGS (3)
  1. RESTORIL [Suspect]
     Indication: INSOMNIA
     Dosage: 30 MG, 23 CAPSULES
     Dates: start: 20031202, end: 20031209
  2. ALCOHOL [Suspect]
     Dates: start: 20031209, end: 20031209
  3. EXEDRIN PM (DOSE AND THERAPY DATES UNKNOWN) [Concomitant]

REACTIONS (11)
  - ALCOHOL POISONING [None]
  - CARDIOMEGALY [None]
  - DEPRESSION [None]
  - DILATATION VENTRICULAR [None]
  - EXCORIATION [None]
  - HEPATIC STEATOSIS [None]
  - HEPATOMEGALY [None]
  - LOSS OF EMPLOYMENT [None]
  - OVERDOSE [None]
  - PULMONARY CONGESTION [None]
  - PULMONARY OEDEMA [None]
